FAERS Safety Report 4939681-2 (Version None)
Quarter: 2006Q1

REPORT INFORMATION
  Report Type: 
  Country: None (occurrence: None)
  Receive Date: 20060310
  Receipt Date: 20050613
  Transmission Date: 20060701
  Serious: Yes (Hospitalization)
  Sender: FDA-Public Use
  Company Number: US-MERCK-0506USA02022

PATIENT
  Age: 41 Year
  Sex: Male
  Weight: 91 kg

DRUGS (6)
  1. VIOXX [Suspect]
     Indication: BACK PAIN
     Route: 048
     Dates: start: 20030501, end: 20041101
  2. VIOXX [Suspect]
     Route: 048
  3. VIOXX [Suspect]
     Indication: HEADACHE
     Route: 048
     Dates: start: 20030501, end: 20041101
  4. VIOXX [Suspect]
     Route: 048
  5. FOLIC ACID [Concomitant]
     Route: 065
  6. WARFARIN SODIUM [Concomitant]
     Route: 065

REACTIONS (1)
  - DEEP VEIN THROMBOSIS [None]
